FAERS Safety Report 9677522 (Version 2)
Quarter: 2013Q4

REPORT INFORMATION
  Report Type: Report from Study
  Country: MX (occurrence: MX)
  Receive Date: 20131108
  Receipt Date: 20131212
  Transmission Date: 20140711
  Serious: Yes (Death)
  Sender: FDA-Public Use
  Company Number: PHHY2013MX126827

PATIENT
  Age: 92 Year
  Sex: Female

DRUGS (2)
  1. EXELON PATCH [Suspect]
     Indication: SENILE DEMENTIA
     Dosage: 9.5 MG(10CM2), DAILY
     Route: 062
     Dates: start: 201202
  2. EXELON PATCH [Suspect]
     Dosage: 13.3 MG, UNK
     Route: 062

REACTIONS (2)
  - Cardio-respiratory arrest [Fatal]
  - Death [Fatal]
